FAERS Safety Report 7814104-4 (Version None)
Quarter: 2011Q4

REPORT INFORMATION
  Report Type: 
  Country: None (occurrence: None)
  Receive Date: 20111014
  Receipt Date: 20111003
  Transmission Date: 20120403
  Serious: Yes (Death)
  Sender: FDA-Public Use
  Company Number: FR-ASTELLAS-2011US006670

PATIENT
  Sex: Male

DRUGS (18)
  1. AMBISOME [Suspect]
     Indication: ACANTHAMOEBA INFECTION
     Dosage: 135 MG, UNKNOWN/D
     Route: 065
     Dates: start: 20100101, end: 20100101
  2. IMOVANE [Concomitant]
     Indication: PRODUCT USED FOR UNKNOWN INDICATION
     Dosage: UNK
     Route: 065
     Dates: end: 20110915
  3. VANCOMYCIN [Concomitant]
     Indication: URINARY TRACT INFECTION ENTEROCOCCAL
     Dosage: UNK
     Route: 065
  4. MEDROL [Concomitant]
     Dosage: 80 MG, UNKNOWN/D
     Route: 065
     Dates: end: 20110915
  5. LEXOMIL [Concomitant]
     Indication: PRODUCT USED FOR UNKNOWN INDICATION
     Dosage: UNK
     Route: 065
     Dates: end: 20110915
  6. ROCEPHIN [Concomitant]
     Indication: PRODUCT USED FOR UNKNOWN INDICATION
     Dosage: UNK
     Route: 065
  7. MEDROL [Concomitant]
     Indication: MENINGIOMA
     Dosage: UNK
     Route: 065
     Dates: end: 20110915
  8. PROGRAF [Concomitant]
     Indication: RENAL TRANSPLANT
     Dosage: UNK
     Route: 065
     Dates: end: 20110915
  9. RISPERDAL [Concomitant]
     Indication: PRODUCT USED FOR UNKNOWN INDICATION
     Dosage: UNK
     Route: 065
     Dates: end: 20110915
  10. PREVISCAN [Concomitant]
     Indication: PRODUCT USED FOR UNKNOWN INDICATION
     Dosage: UNK
     Route: 065
  11. IMPAVIDO [Suspect]
     Indication: PRODUCT USED FOR UNKNOWN INDICATION
     Dosage: 150 MG, UNKNOWN/D
     Route: 048
     Dates: start: 20110801, end: 20110915
  12. AMOXICILLIN [Concomitant]
     Indication: URINARY TRACT INFECTION ENTEROCOCCAL
     Dosage: UNK
     Route: 065
  13. ANCOTIL [Suspect]
     Indication: PRODUCT USED FOR UNKNOWN INDICATION
     Dosage: 9 G, UID/QD
     Route: 042
     Dates: start: 20110801, end: 20110915
  14. ANCOTIL [Suspect]
     Dosage: 9 UNK, UNKNOWN/D
     Route: 065
     Dates: start: 20100101, end: 20100101
  15. AMBISOME [Suspect]
     Indication: PRODUCT USED FOR UNKNOWN INDICATION
     Dosage: 135 MG, UNKNOWN/D
     Route: 042
     Dates: start: 20110801, end: 20110915
  16. CLONAZEPAM [Concomitant]
     Indication: PRODUCT USED FOR UNKNOWN INDICATION
     Dosage: UNK
     Route: 065
     Dates: end: 20110915
  17. REPAGLINIDE [Concomitant]
     Indication: PRODUCT USED FOR UNKNOWN INDICATION
     Dosage: UNK
     Route: 065
  18. GENTAMICIN [Concomitant]
     Indication: URINARY TRACT INFECTION ENTEROCOCCAL
     Dosage: UNK
     Route: 065

REACTIONS (2)
  - SEPTIC SHOCK [None]
  - BONE MARROW FAILURE [None]
